FAERS Safety Report 7595992-6 (Version None)
Quarter: 2011Q3

REPORT INFORMATION
  Report Type: 
  Country: None (occurrence: None)
  Receive Date: 20110707
  Receipt Date: 20110627
  Transmission Date: 20111222
  Serious: Yes (Hospitalization, Other)
  Sender: FDA-Public Use
  Company Number: PHEH2005US10715

PATIENT
  Sex: Female
  Weight: 99.773 kg

DRUGS (39)
  1. AREDIA [Suspect]
     Indication: METASTASES TO BONE
     Dosage: 90 MG, QMO
     Route: 042
     Dates: start: 19990422, end: 20041101
  2. TETRAHYDROCANNABINOL [Suspect]
  3. INTERFERON [Concomitant]
     Dates: start: 20020101
  4. LASIX [Concomitant]
     Indication: OEDEMA
     Dosage: 20 MG, QD
  5. PRILOSEC [Concomitant]
     Dosage: 20MG
  6. INTERFERON [Concomitant]
  7. LIPITOR [Concomitant]
     Indication: HYPERCHOLESTEROLAEMIA
     Dosage: 10 MG, QD
     Route: 048
  8. PROTONIX [Concomitant]
     Dosage: 40 MG, QD
  9. EFFEXOR XR [Concomitant]
     Dosage: 75 MG, QD
  10. TRAZODONE HCL [Concomitant]
     Dosage: 150MG
  11. MICRO-K [Concomitant]
     Dosage: 10 MEQ, BID
  12. MERIDIA [Concomitant]
  13. COUMADIN [Concomitant]
     Indication: THROMBOSIS PROPHYLAXIS
     Dosage: 7.5 MG, QD
     Route: 048
     Dates: start: 19840101
  14. VASOTEC [Concomitant]
     Dosage: 5 MG, QD
  15. ALPRAZOLAM [Concomitant]
     Dosage: UNK, PRN
  16. THALIDOMIDE [Concomitant]
     Dosage: 100 MG, QD
  17. PRILOSEC [Concomitant]
     Dosage: 20MG
  18. BENZODIAZEPINES [Suspect]
  19. VITAMIN K TAB [Concomitant]
     Dosage: 10 MG Q8H X 3 DOSES
     Route: 058
  20. OPIUM ^DAK^ [Suspect]
  21. PROLEUKIN [Concomitant]
     Dosage: UNK, UNK
     Dates: start: 20021014, end: 20030401
  22. NEURONTIN [Concomitant]
     Indication: NEUROPATHY PERIPHERAL
     Dosage: 300 MG, QD
  23. XANAX [Concomitant]
     Indication: ANXIETY
     Dosage: 0.25 MG, PRN
  24. POTASSIUM [Concomitant]
  25. DURAGESIC-100 [Concomitant]
     Dosage: 25 MG, Q72H
  26. MORPHINE SULFATE [Concomitant]
     Dosage: 15 MG, Q12H
  27. ZAROXOLYN [Concomitant]
  28. ALBUTEROL SULFATE AUTOHALER [Concomitant]
     Indication: ASTHMA
     Dosage: UNK, PRN
  29. ZOFRAN [Concomitant]
  30. FERROUS SULFATE TAB [Concomitant]
  31. MS CONTIN [Concomitant]
     Dosage: 15 MG, Q12H
  32. PROLEUKIN [Concomitant]
     Indication: RENAL CELL CARCINOMA
     Route: 058
     Dates: start: 19990501, end: 20000122
  33. ATARAX [Concomitant]
  34. ALLOPURINOL [Concomitant]
     Indication: GOUT
     Dosage: 100 MG, BID
  35. ALDACTONE [Concomitant]
     Dosage: 100 MG, BID
  36. LIPITOR [Concomitant]
     Dosage: 10 MG, QD
  37. RANITIDINE [Concomitant]
     Dosage: 150 MG, BID
     Route: 048
  38. NASACORT AQ [Concomitant]
  39. ZOLOFT [Concomitant]
     Dosage: 50 MG, QD

REACTIONS (47)
  - BONE DISORDER [None]
  - HAEMATEMESIS [None]
  - PYREXIA [None]
  - GASTROINTESTINAL HAEMORRHAGE [None]
  - DIVERTICULUM [None]
  - GASTRIC ULCER [None]
  - SKIN ULCER [None]
  - IMPAIRED HEALING [None]
  - MUSCULOSKELETAL DISCOMFORT [None]
  - SEPSIS [None]
  - OSTEOARTHRITIS [None]
  - TOXICITY TO VARIOUS AGENTS [None]
  - NEOPLASM MALIGNANT [None]
  - SWELLING [None]
  - HEADACHE [None]
  - HYPOAESTHESIA [None]
  - ERYTHEMA [None]
  - CARDIAC FAILURE CONGESTIVE [None]
  - FUNGAL INFECTION [None]
  - METASTASES TO OVARY [None]
  - ABSCESS [None]
  - METASTATIC RENAL CELL CARCINOMA [None]
  - BACTERIAL INFECTION [None]
  - RED BLOOD CELL SEDIMENTATION RATE INCREASED [None]
  - MUSCULAR WEAKNESS [None]
  - SUBCUTANEOUS NODULE [None]
  - RENAL FAILURE ACUTE [None]
  - OSTEONECROSIS OF JAW [None]
  - INFLAMMATION [None]
  - GINGIVAL PAIN [None]
  - VISION BLURRED [None]
  - LYMPHADENITIS [None]
  - TENDERNESS [None]
  - LYMPHADENOPATHY [None]
  - URINARY INCONTINENCE [None]
  - VENOUS THROMBOSIS [None]
  - HIATUS HERNIA [None]
  - DEPRESSED LEVEL OF CONSCIOUSNESS [None]
  - SUBMANDIBULAR MASS [None]
  - BONE NEOPLASM MALIGNANT [None]
  - GINGIVAL ULCERATION [None]
  - BACK PAIN [None]
  - THROMBOPHLEBITIS [None]
  - WOUND INFECTION [None]
  - HYPOTENSION [None]
  - ALTERED STATE OF CONSCIOUSNESS [None]
  - LUNG NEOPLASM MALIGNANT [None]
